FAERS Safety Report 8319835-8 (Version None)
Quarter: 2012Q2

REPORT INFORMATION
  Report Type: 
  Country: None (occurrence: None)
  Receive Date: 20120427
  Receipt Date: 20120423
  Transmission Date: 20120825
  Serious: No
  Sender: FDA-Public Use
  Company Number: US-PFIZER INC-2008006878

PATIENT
  Sex: Male
  Weight: 99.773 kg

DRUGS (3)
  1. IBUPROFEN [Concomitant]
     Dosage: UNK
  2. CELEBREX [Suspect]
     Indication: ARTHRITIS
     Dosage: UNK
     Dates: start: 20010101
  3. CELEBREX [Suspect]
     Dosage: UNK
     Dates: start: 20071201, end: 20080101

REACTIONS (5)
  - DECREASED APPETITE [None]
  - DRUG INTOLERANCE [None]
  - DYSPEPSIA [None]
  - GASTRIC DISORDER [None]
  - ABDOMINAL DISCOMFORT [None]
